FAERS Safety Report 6309481-X (Version None)
Quarter: 2009Q3

REPORT INFORMATION
  Report Type: 
  Country: None (occurrence: None)
  Receive Date: 20090814
  Receipt Date: 20090512
  Transmission Date: 20100115
  Serious: No
  Sender: FDA-Public Use
  Company Number: US-BAYER-200920768NA

PATIENT
  Age: 14 Year
  Sex: Female

DRUGS (1)
  1. YAZ [Suspect]
     Indication: MENSTRUATION IRREGULAR
     Route: 048
     Dates: start: 20090301, end: 20090401

REACTIONS (5)
  - ERYTHEMA [None]
  - NO ADVERSE EVENT [None]
  - SKIN DISCOLOURATION [None]
  - SWELLING FACE [None]
  - WITHDRAWAL BLEED [None]
